FAERS Safety Report 7314844-X (Version None)
Quarter: 2011Q1

REPORT INFORMATION
  Report Type: 
  Country: None (occurrence: None)
  Receive Date: 20110225
  Receipt Date: 20100330
  Transmission Date: 20110831
  Serious: No
  Sender: FDA-Public Use
  Company Number: US-MYLANLABS-2009S1019301

PATIENT
  Age: 41 Year
  Sex: Female
  Weight: 77.11 kg

DRUGS (6)
  1. CLOBETASOL PROPIONATE [Concomitant]
     Dosage: TOPICAL STEROID
     Route: 061
  2. DOVONEX [Concomitant]
     Dosage: TOPICAL VITAMIN D
     Route: 061
  3. CLARAVIS [Suspect]
     Indication: PSORIASIS
     Route: 048
  4. VECTICAL [Concomitant]
     Dosage: TOPICAL VITAMIN D
     Route: 061
  5. AMNESTEEM [Suspect]
     Indication: PSORIASIS
     Route: 048
     Dates: end: 20090901
  6. ORAL CONTRACEPTIVE NOS [Concomitant]

REACTIONS (3)
  - DERMATITIS [None]
  - DRUG INEFFECTIVE FOR UNAPPROVED INDICATION [None]
  - RASH PRURITIC [None]
